FAERS Safety Report 10360620 (Version 2)
Quarter: 2015Q3

REPORT INFORMATION
  Report Type: Spontaneous
  Country: CH (occurrence: CH)
  Receive Date: 20140804
  Receipt Date: 20150731
  Transmission Date: 20151125
  Serious: Yes (Other)
  Sender: FDA-Public Use
  Company Number: CH-009507513-1407CHE014229

PATIENT
  Age: 33 Year
  Sex: Female

DRUGS (9)
  1. PYRIDOXINE HYDROCHLORIDE. [Concomitant]
     Active Substance: PYRIDOXINE HYDROCHLORIDE
     Indication: ROUTINE HEALTH MAINTENANCE
  2. ISONIAZID. [Suspect]
     Active Substance: ISONIAZID
     Dosage: 100 MG, QD
     Route: 048
     Dates: start: 20130925, end: 20140205
  3. PYRAZINAMIDE. [Suspect]
     Active Substance: PYRAZINAMIDE
     Indication: TUBERCULOSIS
     Dosage: 1200 MG DAILY
     Dates: start: 20130724
  4. ETHAMBUTOL HYDROCHLORIDE. [Suspect]
     Active Substance: ETHAMBUTOL HYDROCHLORIDE
     Indication: TUBERCULOSIS
     Dosage: 825 MG, QD
     Dates: start: 20130724
  5. RIFAMPIN. [Interacting]
     Active Substance: RIFAMPIN
     Indication: TUBERCULOSIS
     Dosage: 450MG, QD
     Route: 048
     Dates: start: 20130724
  6. RIFAMPIN. [Interacting]
     Active Substance: RIFAMPIN
     Dosage: 300 MG, QD
     Route: 048
     Dates: start: 20130925, end: 20140205
  7. PYRIDOXINE HYDROCHLORIDE. [Concomitant]
     Active Substance: PYRIDOXINE HYDROCHLORIDE
     Indication: POLYNEUROPATHY
     Dosage: 40MG, QD
     Route: 048
     Dates: start: 20130724, end: 20140205
  8. IMPLANON [Interacting]
     Active Substance: ETONOGESTREL
     Indication: CONTRACEPTION
     Dosage: UNK
     Route: 058
     Dates: end: 20140409
  9. ISONIAZID. [Suspect]
     Active Substance: ISONIAZID
     Indication: TUBERCULOSIS
     Dosage: 225MG, QD
     Route: 048
     Dates: start: 20130724

REACTIONS (4)
  - Pregnancy on contraceptive [Unknown]
  - Drug interaction [Unknown]
  - Device ineffective [Recovered/Resolved]
  - Exposure during pregnancy [Unknown]

NARRATIVE: CASE EVENT DATE: 201401
